FAERS Safety Report 6487074-1 (Version None)
Quarter: 2009Q4

REPORT INFORMATION
  Report Type: 
  Country: None (occurrence: None)
  Receive Date: 20091210
  Receipt Date: 20091208
  Transmission Date: 20100525
  Serious: Yes (Death, Life-Threatening, Hospitalization, Other)
  Sender: FDA-Public Use
  Company Number: JP-ROXANE LABORATORIES, INC.-2009-RO-01235RO

PATIENT
  Age: 59 Year
  Sex: Male

DRUGS (23)
  1. ENDOXANA [Suspect]
     Indication: CHEMOTHERAPY
  2. ENDOXANA [Suspect]
     Indication: STEM CELL TRANSPLANT
  3. ENDOXANA [Suspect]
     Indication: DIFFUSE LARGE B-CELL LYMPHOMA
  4. METHOTREXATE [Suspect]
     Indication: CHEMOTHERAPY
  5. METHOTREXATE [Suspect]
     Indication: DIFFUSE LARGE B-CELL LYMPHOMA
  6. DOXORUBICIN [Suspect]
     Indication: CHEMOTHERAPY
  7. DOXORUBICIN [Suspect]
     Indication: DIFFUSE LARGE B-CELL LYMPHOMA
  8. VINCRISTINE [Suspect]
     Indication: CHEMOTHERAPY
  9. VINCRISTINE [Suspect]
     Indication: DIFFUSE LARGE B-CELL LYMPHOMA
  10. PREDNISOLONE [Suspect]
     Indication: CHEMOTHERAPY
  11. PREDNISOLONE [Suspect]
     Indication: DIFFUSE LARGE B-CELL LYMPHOMA
  12. BLEOMYCIN SULFATE [Suspect]
     Indication: CHEMOTHERAPY
  13. BLEOMYCIN SULFATE [Suspect]
     Indication: DIFFUSE LARGE B-CELL LYMPHOMA
  14. ETOPOSIDE [Suspect]
     Indication: CHEMOTHERAPY
  15. ETOPOSIDE [Suspect]
     Indication: DIFFUSE LARGE B-CELL LYMPHOMA
  16. ETOPOSIDE [Suspect]
     Indication: PERIPHERAL BLOOD STEM CELL APHERESIS
  17. IFOSFAMIDE [Suspect]
     Indication: CHEMOTHERAPY
  18. IFOSFAMIDE [Suspect]
     Indication: DIFFUSE LARGE B-CELL LYMPHOMA
  19. RANIMUSTINE [Suspect]
     Indication: STEM CELL TRANSPLANT
  20. CARBOPLATIN [Suspect]
     Indication: STEM CELL TRANSPLANT
  21. CYTARABINE [Suspect]
     Indication: STEM CELL TRANSPLANT
  22. DIURETICS [Concomitant]
     Indication: SUPPORTIVE CARE
  23. CATECHOLAMINES [Concomitant]
     Indication: SUPPORTIVE CARE

REACTIONS (10)
  - ATRIAL FIBRILLATION [None]
  - CARDIAC ARREST [None]
  - CARDIAC FAILURE CONGESTIVE [None]
  - CARDIAC OUTPUT DECREASED [None]
  - CARDIOTOXICITY [None]
  - FATIGUE [None]
  - HEPATIC FUNCTION ABNORMAL [None]
  - NEUTROPENIA [None]
  - RENAL IMPAIRMENT [None]
  - THROMBOCYTOPENIA [None]
